FAERS Safety Report 15592962 (Version 1)
Quarter: 2018Q4

REPORT INFORMATION
  Report Type: Spontaneous
  Country: ES (occurrence: ES)
  Receive Date: 20181107
  Receipt Date: 20181107
  Transmission Date: 20190205
  Serious: Yes (Hospitalization, Other)
  Sender: FDA-Public Use
  Company Number: ES-ALLERGAN-1832783US

PATIENT
  Age: 81 Year
  Sex: Female

DRUGS (1)
  1. COMBIGAN [Suspect]
     Active Substance: BRIMONIDINE TARTRATE\TIMOLOL MALEATE
     Indication: OPEN ANGLE GLAUCOMA
     Dosage: UNK UNK, Q12H
     Route: 047

REACTIONS (2)
  - Iridocyclitis [Recovering/Resolving]
  - Uveitis [Recovering/Resolving]
